FAERS Safety Report 11068291 (Version 1)
Quarter: 2015Q2

REPORT INFORMATION
  Report Type: Spontaneous
  Country: US (occurrence: US)
  Receive Date: 20150427
  Receipt Date: 20150427
  Transmission Date: 20150821
  Serious: No
  Sender: FDA-Public Use
  Company Number: US-ASTRAZENECA-2014SE32430

PATIENT
  Age: 5 Year
  Sex: Male

DRUGS (1)
  1. PULMICORT TURBUHALER [Suspect]
     Active Substance: BUDESONIDE
     Route: 055
     Dates: start: 201402

REACTIONS (2)
  - Pharyngitis streptococcal [Unknown]
  - Product use issue [Unknown]

NARRATIVE: CASE EVENT DATE: 201402
